FAERS Safety Report 5675824-3 (Version None)
Quarter: 2008Q1

REPORT INFORMATION
  Report Type: 
  Country: None (occurrence: None)
  Receive Date: 20080321
  Receipt Date: 20080312
  Transmission Date: 20080703
  Serious: Yes (Death, Life-Threatening)
  Sender: FDA-Public Use
  Company Number: JP-PFIZER INC-2005056488

PATIENT
  Sex: Male

DRUGS (15)
  1. ADRIACIN [Suspect]
     Indication: HODGKIN'S DISEASE
     Dosage: DAILY DOSE:25MG/M2
     Route: 042
  2. ADRIACIN [Suspect]
     Dosage: DAILY DOSE:10MG/M2
     Route: 042
  3. BLEOMYCIN SULFATE [Suspect]
     Indication: HODGKIN'S DISEASE
     Dosage: DAILY DOSE:6MG/M2
     Route: 042
     Dates: start: 20020110, end: 20020613
  4. VINBLASTINE SULFATE [Suspect]
     Indication: HODGKIN'S DISEASE
     Dates: start: 20020110, end: 20020613
  5. DACARBAZINE [Suspect]
     Indication: HODGKIN'S DISEASE
     Route: 042
     Dates: start: 20020110, end: 20020530
  6. DACARBAZINE [Suspect]
     Route: 042
     Dates: start: 20020613, end: 20020613
  7. ONCOVIN [Concomitant]
     Route: 042
     Dates: start: 20010913, end: 20010913
  8. NATULAN [Concomitant]
     Dosage: DAILY DOSE:100MG/M*2
     Route: 048
     Dates: start: 20010913, end: 20011001
  9. PREDNISOLONE [Concomitant]
     Dosage: DAILY DOSE:40MG/M*2
     Route: 048
     Dates: start: 20010913, end: 20011001
  10. KYTRIL [Concomitant]
     Dosage: DAILY DOSE:1.6MG
     Route: 042
     Dates: start: 20020110, end: 20020613
  11. SEROTONE [Concomitant]
     Dosage: DAILY DOSE:10MG
     Route: 042
     Dates: start: 20020110, end: 20020613
  12. PREDNISONE [Concomitant]
     Dosage: DAILY DOSE:10MG
     Route: 048
  13. DIOVAN [Concomitant]
     Dosage: DAILY DOSE:40MG
     Route: 048
  14. ACECOL [Concomitant]
     Dosage: DAILY DOSE:1MG
     Route: 048
  15. ADALAT [Concomitant]
     Route: 048

REACTIONS (2)
  - EWING'S SARCOMA [None]
  - NEOPLASM MALIGNANT [None]
